FAERS Safety Report 4968040-1 (Version None)
Quarter: 2006Q2

REPORT INFORMATION
  Report Type: 
  Country: None (occurrence: None)
  Receive Date: 20060410
  Receipt Date: 20040909
  Transmission Date: 20061013
  Serious: Yes (Hospitalization)
  Sender: FDA-Public Use
  Company Number: GR-ROCHE-380050

PATIENT
  Age: 64 Year
  Sex: Female
  Weight: 71 kg

DRUGS (2)
  1. PEG-INTERFERON ALFA 2A (RO 25-8310) [Suspect]
     Route: 058
     Dates: start: 20040616, end: 20040827
  2. RIBAVIRIN [Suspect]
     Route: 048
     Dates: start: 20040616, end: 20040827

REACTIONS (4)
  - ABDOMINAL PAIN UPPER [None]
  - THROMBOCYTOPENIA [None]
  - URINE AMYLASE INCREASED [None]
  - VOMITING [None]
